FAERS Safety Report 6408977-X (Version None)
Quarter: 2009Q4

REPORT INFORMATION
  Report Type: 
  Country: None (occurrence: None)
  Receive Date: 20091019
  Receipt Date: 20091019
  Transmission Date: 20100525
  Serious: Yes (Life-Threatening, Hospitalization, Other)
  Sender: FDA-Public Use
  Company Number: None

PATIENT
  Age: 39 Year
  Sex: Female
  Weight: 70.3075 kg

DRUGS (2)
  1. YAZ [Suspect]
     Indication: CONTRACEPTION
     Dosage: 1 DAILY X28DAYS PO
     Route: 048
     Dates: start: 20090201, end: 20091006
  2. YAZ [Suspect]
     Indication: MENSTRUAL DISORDER
     Dosage: 1 DAILY X28DAYS PO
     Route: 048
     Dates: start: 20090201, end: 20091006

REACTIONS (2)
  - IMPAIRED WORK ABILITY [None]
  - PULMONARY EMBOLISM [None]
